FAERS Safety Report 9811820 (Version 1)
Quarter: 2014Q1

REPORT INFORMATION
  Report Type: Spontaneous
  Country: US (occurrence: US)
  Receive Date: 20140110
  Receipt Date: 20140110
  Transmission Date: 20141002
  Serious: Yes (Hospitalization, Other)
  Sender: FDA-Public Use
  Company Number: US-ASTRAZENECA-2014SE00656

PATIENT
  Age: 53 Year
  Sex: Male

DRUGS (8)
  1. METOPROLOL [Suspect]
     Indication: BLOOD PRESSURE ABNORMAL
     Route: 048
     Dates: start: 201308
  2. BRILINTA [Suspect]
     Indication: STENT PLACEMENT
     Route: 048
     Dates: start: 201308
  3. ATORVASTATIN [Concomitant]
     Indication: BLOOD CHOLESTEROL ABNORMAL
     Route: 048
     Dates: start: 201308, end: 20140101
  4. LOVASTATIN [Concomitant]
     Indication: BLOOD CHOLESTEROL ABNORMAL
     Route: 048
     Dates: start: 20140102
  5. NITROGLYCERIN [Concomitant]
     Indication: CHEST PAIN
     Dosage: PRN
     Route: 048
     Dates: start: 201308
  6. AMLODIPINE [Concomitant]
     Route: 048
     Dates: start: 201308
  7. ASPIRIN [Concomitant]
     Route: 048
     Dates: start: 201308
  8. XANAX [Concomitant]

REACTIONS (9)
  - Muscle spasms [Unknown]
  - Myalgia [Unknown]
  - Abasia [Unknown]
  - Enzyme abnormality [Unknown]
  - Device occlusion [Unknown]
  - Ageusia [Not Recovered/Not Resolved]
  - Decreased appetite [Not Recovered/Not Resolved]
  - Chest pain [Unknown]
  - Dysgeusia [Unknown]
